FAERS Safety Report 8667010 (Version 2)
Quarter: 2013Q1

REPORT INFORMATION
  Report Type: Spontaneous
  Country: US (occurrence: US)
  Receive Date: 20120716
  Receipt Date: 20130219
  Transmission Date: 20140127
  Serious: Yes (Other)
  Sender: FDA-Public Use
  Company Number: US-ROCHE-1085104

PATIENT
  Age: 72 Year
  Sex: Female
  Weight: 71.73 kg

DRUGS (4)
  1. ACTEMRA [Suspect]
     Indication: RHEUMATOID ARTHRITIS
     Route: 042
     Dates: start: 201110
  2. ACTEMRA [Suspect]
     Route: 042
     Dates: start: 20120629
  3. ACTEMRA [Suspect]
     Route: 042
     Dates: start: 20120215, end: 201206
  4. ACTEMRA [Suspect]
     Route: 042
     Dates: start: 20121115

REACTIONS (4)
  - Cataract operation [Unknown]
  - Cystitis [Unknown]
  - Vomiting [Recovering/Resolving]
  - Diarrhoea haemorrhagic [Recovering/Resolving]
